FAERS Safety Report 17505116 (Version 1)
Quarter: 2020Q1

REPORT INFORMATION
  Report Type: Report from Study
  Country: None (occurrence: LB)
  Receive Date: 20200306
  Receipt Date: 20200306
  Transmission Date: 20200409
  Serious: Yes (Death, Congenital Anomaly)
  Sender: FDA-Public Use
  Company Number: LB-ABBVIE-20K-093-3303714-00

PATIENT

DRUGS (5)
  1. HUMIRA [Suspect]
     Active Substance: ADALIMUMAB
     Indication: MATERNAL EXPOSURE TIMING UNSPECIFIED
     Route: 064
     Dates: start: 20190502, end: 201911
  2. HUMIRA [Suspect]
     Active Substance: ADALIMUMAB
     Indication: MATERNAL EXPOSURE TIMING UNSPECIFIED
     Route: 064
     Dates: start: 20180717, end: 20180717
  3. HUMIRA [Suspect]
     Active Substance: ADALIMUMAB
     Route: 064
     Dates: start: 20180814, end: 20190501
  4. HUMIRA [Suspect]
     Active Substance: ADALIMUMAB
     Route: 064
     Dates: start: 20180717, end: 20180717
  5. HUMIRA [Suspect]
     Active Substance: ADALIMUMAB
     Route: 064
     Dates: start: 20180731, end: 20180731

REACTIONS (3)
  - Foetal exposure during pregnancy [Unknown]
  - Foetal growth restriction [Fatal]
  - Foetal growth abnormality [Fatal]

NARRATIVE: CASE EVENT DATE: 202002
